FAERS Safety Report 9539054 (Version 2)
Quarter: 2013Q4

REPORT INFORMATION
  Report Type: Spontaneous
  Country: DE (occurrence: DE)
  Receive Date: 20130920
  Receipt Date: 20131105
  Transmission Date: 20140711
  Serious: Yes (Other)
  Sender: FDA-Public Use
  Company Number: DE-JNJFOC-20130911157

PATIENT
  Age: 71 Year
  Sex: Female

DRUGS (7)
  1. XARELTO [Suspect]
     Indication: CEREBROVASCULAR ACCIDENT PROPHYLAXIS
     Route: 048
     Dates: start: 20130704, end: 20130718
  2. XARELTO [Suspect]
     Indication: ATRIAL FIBRILLATION
     Route: 048
     Dates: start: 20130704, end: 20130718
  3. DELIX [Concomitant]
     Route: 065
  4. SPIRIVA [Concomitant]
     Route: 065
  5. SYMBICORT [Concomitant]
     Route: 065
  6. ISOPTIN - SLOW RELEASE [Concomitant]
     Route: 065
  7. PANTOPRAZOLE [Concomitant]
     Route: 065

REACTIONS (2)
  - Dermatitis allergic [Recovered/Resolved]
  - Pruritus [Recovered/Resolved]
